FAERS Safety Report 22709968 (Version 12)
Quarter: 2025Q2

REPORT INFORMATION
  Report Type: Spontaneous
  Country: US (occurrence: US)
  Receive Date: 20230717
  Receipt Date: 20250416
  Transmission Date: 20250716
  Serious: Yes (Hospitalization, Other)
  Sender: NOVARTIS
  Company Number: US-002147023-NVSC2023US156771

PATIENT
  Sex: Female

DRUGS (5)
  1. PROMACTA [Suspect]
     Active Substance: ELTROMBOPAG OLAMINE
     Indication: Immune thrombocytopenia
     Dosage: 50 MG, QD (EVERY MORNING)
     Route: 048
     Dates: start: 201705
  2. PROMACTA [Suspect]
     Active Substance: ELTROMBOPAG OLAMINE
     Dosage: 50 MG, QD
     Route: 048
     Dates: start: 202303
  3. PROMACTA [Suspect]
     Active Substance: ELTROMBOPAG OLAMINE
     Dosage: 50 MG, QD
     Route: 048
     Dates: start: 20240304
  4. PREDNISONE [Suspect]
     Active Substance: PREDNISONE
     Indication: Product used for unknown indication
     Route: 065
  5. ALVAIZ [Suspect]
     Active Substance: ELTROMBOPAG CHOLINE
     Indication: Product used for unknown indication
     Route: 065

REACTIONS (20)
  - Speech disorder [Unknown]
  - Visual impairment [Unknown]
  - Lip disorder [Unknown]
  - Intracranial mass [Unknown]
  - Cataract [Unknown]
  - Vision blurred [Unknown]
  - Agitation [Unknown]
  - Platelet count decreased [Unknown]
  - Weight increased [Unknown]
  - Depression [Unknown]
  - Dry skin [Unknown]
  - Skin exfoliation [Unknown]
  - Diarrhoea [Unknown]
  - Heart rate decreased [Unknown]
  - Platelet count increased [Unknown]
  - Abdominal pain upper [Unknown]
  - Arthralgia [Unknown]
  - Arthralgia [Unknown]
  - Back pain [Unknown]
  - Arthralgia [Unknown]
